FAERS Safety Report 8444220-8 (Version None)
Quarter: 2012Q2

REPORT INFORMATION
  Report Type: 
  Country: None (occurrence: None)
  Receive Date: 20120618
  Receipt Date: 20110526
  Transmission Date: 20120825
  Serious: No
  Sender: FDA-Public Use
  Company Number: US-GLAXOSMITHKLINE-A0929221A

PATIENT
  Age: 34 Year
  Sex: Female

DRUGS (4)
  1. CLOBETASOL PROPIONATE [Suspect]
     Indication: PRODUCT USED FOR UNKNOWN INDICATION
     Route: 061
  2. ALLEGRA [Concomitant]
  3. BOOSTRIX [Suspect]
     Indication: PROPHYLAXIS
     Dosage: .5ML SINGLE DOSE
     Route: 065
     Dates: start: 20110525, end: 20110525
  4. MULTI-VITAMIN [Concomitant]

REACTIONS (2)
  - LIVE BIRTH [None]
  - MATERNAL EXPOSURE DURING PREGNANCY [None]
